FAERS Safety Report 19748135 (Version 4)
Quarter: 2022Q1

REPORT INFORMATION
  Report Type: Report from Study
  Country: IT (occurrence: IT)
  Receive Date: 20210825
  Receipt Date: 20220310
  Transmission Date: 20220423
  Serious: No
  Sender: FDA-Public Use
  Company Number: IT-UCBSA-2021039515

PATIENT
  Sex: Female

DRUGS (1)
  1. ROTIGOTINE [Suspect]
     Active Substance: ROTIGOTINE
     Indication: Product used for unknown indication
     Dosage: 8 MILLIGRAM, UNK
     Route: 062
     Dates: start: 2011

REACTIONS (7)
  - Hyperhidrosis [Unknown]
  - Limb discomfort [Unknown]
  - Skin discomfort [Unknown]
  - Device adhesion issue [Unknown]
  - Intentional product misuse [Unknown]
  - Product use issue [Unknown]
  - Drug ineffective [Unknown]
